FAERS Safety Report 25645336 (Version 1)
Quarter: 2025Q3

REPORT INFORMATION
  Report Type: Spontaneous
  Country: US (occurrence: None)
  Receive Date: 20250804
  Receipt Date: 20250804
  Transmission Date: 20251021
  Serious: Yes (Other)
  Sender: FDA-CTU
  Company Number: None

PATIENT
  Age: 20 Year
  Sex: Male
  Weight: 25.5 kg

DRUGS (1)
  1. EPIDIOLEX [Suspect]
     Active Substance: CANNABIDIOL
     Indication: Lennox-Gastaut syndrome
     Dosage: FREQUENCY : TWICE A DAY?OTHER ROUTE : PER G-TUBE?
     Route: 050
     Dates: start: 20250701, end: 20250701

REACTIONS (3)
  - Seizure [None]
  - Contusion [None]
  - Therapy cessation [None]

NARRATIVE: CASE EVENT DATE: 20250701
